FAERS Safety Report 8187845-X (Version None)
Quarter: 2012Q1

REPORT INFORMATION
  Report Type: 
  Country: None (occurrence: None)
  Receive Date: 20120306
  Receipt Date: 20120305
  Transmission Date: 20120608
  Serious: Yes (Other)
  Sender: FDA-Public Use
  Company Number: US-BAYER-200829333NA

PATIENT
  Sex: Male
  Weight: 82 kg

DRUGS (48)
  1. OPTIMARK [Suspect]
     Indication: NUCLEAR MAGNETIC RESONANCE IMAGING
  2. MULTIHANCE [Suspect]
     Indication: NUCLEAR MAGNETIC RESONANCE IMAGING
  3. CONTRAST MEDIA [Suspect]
     Indication: NUCLEAR MAGNETIC RESONANCE IMAGING
     Dosage: UNK
     Dates: start: 19901213
  4. PIOGLITAZONE [Concomitant]
     Dosage: 45 MG, QD
  5. NOVOLOG MIX 70/30 [Concomitant]
  6. RANEXA [Concomitant]
     Dosage: 500 MG, QD
  7. FLOMAX [Concomitant]
  8. OMNISCAN [Suspect]
     Indication: NUCLEAR MAGNETIC RESONANCE IMAGING
     Dosage: 20 ML, UNK
     Dates: start: 20030402, end: 20110402
  9. OMNISCAN [Suspect]
     Indication: ANGIOGRAM
     Dosage: UNK
     Dates: start: 20040504, end: 20040504
  10. PROHANCE [Suspect]
     Indication: NUCLEAR MAGNETIC RESONANCE IMAGING BRAIN
     Dosage: 19 ML, UNK
     Dates: start: 20030508
  11. ASPIRIN [Concomitant]
  12. COREG [Concomitant]
     Dosage: 3.125 MG, BID
  13. DEMADEX [Concomitant]
  14. GADOLINIUM IN UNSPECIFIED DRUG [Suspect]
     Dosage: UNK
     Dates: start: 20050304
  15. PREDNISONE TAB [Concomitant]
     Dosage: DAILY DOSE 5 MG
  16. COZAAR [Concomitant]
     Dosage: 50 MG, QD
  17. LASIX [Concomitant]
     Dosage: 40 MG, BID
  18. IRON SUPPLEMENT [Concomitant]
  19. LOPRESSOR [Concomitant]
  20. GADOLINIUM IN UNSPECIFIED DRUG [Suspect]
     Dosage: UNK
     Dates: start: 20050315
  21. CONTRAST MEDIA [Suspect]
     Dosage: UNK
     Dates: start: 20001026
  22. PLAVIX [Concomitant]
     Dosage: DAILY DOSE 75 MG
  23. NEPHROVITE [VIT C,VIT H,B5,B12,B9,B3,B6,B2,B1 HCL] [Concomitant]
  24. NEURONTIN [Concomitant]
  25. ALLOPURINOL [Concomitant]
  26. ASPIRIN [Concomitant]
     Dosage: 81 MG, QD
  27. AMBIEN [Concomitant]
  28. METOPROLOL SUCCINATE [Concomitant]
  29. MAGNEVIST [Suspect]
     Indication: NUCLEAR MAGNETIC RESONANCE IMAGING
     Dosage: UNK ML, UNK
     Dates: start: 20031010
  30. MAGNEVIST [Suspect]
     Indication: ARTERIOGRAM CORONARY
     Dosage: UNK
     Dates: start: 20040504, end: 20040504
  31. MAGNEVIST [Suspect]
     Indication: ANGIOPLASTY
     Dosage: UNK
     Dates: start: 20050304, end: 20050304
  32. RENAGEL [Concomitant]
  33. CONTRAST MEDIA [Suspect]
     Dosage: UNK
     Dates: start: 20010904
  34. ARANESP [Concomitant]
  35. PROGRAF [Concomitant]
     Dosage: 0.5 MG, BID
  36. IMDUR [Concomitant]
  37. AVAPRO [Concomitant]
  38. PROHANCE [Suspect]
     Indication: NUCLEAR MAGNETIC RESONANCE IMAGING
     Dosage: 19 UNK, UNK
     Dates: start: 20031116
  39. GADOLINIUM IN UNSPECIFIED DRUG [Suspect]
     Indication: NUCLEAR MAGNETIC RESONANCE IMAGING
     Dates: start: 20050304, end: 20050304
  40. MYCOPHENOLATE MOFETIL (CELLCEPT) [Concomitant]
     Dosage: DAILY DOSE 500 MG
  41. LIPITOR [Concomitant]
     Dosage: 40 MG, QD
  42. JANUVIA [Concomitant]
     Dosage: 100 MG, QD
  43. GABAPENTIN [Concomitant]
     Dosage: 300 MG, QD
  44. DILTIAZEM HCL [Concomitant]
  45. VISIPAQUE [Suspect]
     Indication: ANGIOPLASTY
     Dosage: 100 ML, UNK
     Dates: start: 20050315
  46. DIOVAN [Concomitant]
  47. INDERAL [Concomitant]
  48. STARLIX [Concomitant]

REACTIONS (10)
  - GENERAL PHYSICAL HEALTH DETERIORATION [None]
  - MOBILITY DECREASED [None]
  - MUSCULAR WEAKNESS [None]
  - RENAL FAILURE CHRONIC [None]
  - ANXIETY [None]
  - EMOTIONAL DISTRESS [None]
  - BONE PAIN [None]
  - NEPHROGENIC SYSTEMIC FIBROSIS [None]
  - INJURY [None]
  - PAIN [None]
